FAERS Safety Report 5123791-3 (Version None)
Quarter: 2006Q4

REPORT INFORMATION
  Report Type: 
  Country: None (occurrence: None)
  Receive Date: 20061010
  Receipt Date: 20021202
  Transmission Date: 20070319
  Serious: Yes (Other)
  Sender: FDA-Public Use
  Company Number: GB-AVENTIS-200221366GDDC

PATIENT
  Age: 71 Year
  Sex: Female

DRUGS (3)
  1. FRUMIL [Suspect]
     Indication: ANGINA PECTORIS
     Dosage: DOSE: 5/40
     Route: 048
     Dates: start: 20021105, end: 20021109
  2. ISOSORBIDE MONONITRATE [Concomitant]
     Route: 048
     Dates: start: 20011101
  3. FELODIPINE [Concomitant]
     Route: 048

REACTIONS (3)
  - DEPRESSION [None]
  - FATIGUE [None]
  - RASH [None]
